FAERS Safety Report 19585758 (Version 5)
Quarter: 2022Q4

REPORT INFORMATION
  Report Type: Spontaneous
  Country: FR (occurrence: FR)
  Receive Date: 20210720
  Receipt Date: 20221130
  Transmission Date: 20230113
  Serious: Yes (Hospitalization, Other)
  Sender: FDA-Public Use
  Company Number: None

PATIENT
  Age: 73 Year
  Sex: Male
  Weight: 106 kg

DRUGS (15)
  1. HYDROCORTISONE [Suspect]
     Active Substance: HYDROCORTISONE
     Indication: Infection
     Dosage: 200 MG, QD
     Route: 042
     Dates: start: 20210521, end: 20210521
  2. FOSFOMYCIN CALCIUM [Suspect]
     Active Substance: FOSFOMYCIN CALCIUM
     Indication: Infection
     Route: 042
     Dates: start: 20210521, end: 20210523
  3. SPIRAMYCIN [Suspect]
     Active Substance: SPIRAMYCIN
     Indication: Infection
     Dosage: 1.5 MIU, Q8H
     Route: 042
     Dates: start: 20210521, end: 20210523
  4. MEROPENEM [Suspect]
     Active Substance: MEROPENEM
     Indication: Infection
     Dosage: 6 G, QD
     Route: 042
     Dates: start: 20210521, end: 20210525
  5. KONAKION [Suspect]
     Active Substance: PHYTONADIONE
     Indication: Product used for unknown indication
     Dosage: 10 MG, QD
     Route: 042
     Dates: start: 20210521, end: 20210521
  6. NOREPINEPHRINE\NOREPINEPHRINE BITARTRATE [Suspect]
     Active Substance: NOREPINEPHRINE\NOREPINEPHRINE BITARTRATE
     Indication: Hypotension
     Route: 042
     Dates: start: 20210521, end: 20210521
  7. FLUDROCORTISONE ACETATE [Suspect]
     Active Substance: FLUDROCORTISONE ACETATE
     Indication: Infection
     Dosage: 50 MICROGRAM, QD
     Route: 048
     Dates: start: 20210521, end: 20210521
  8. VALACYCLOVIR [Suspect]
     Active Substance: VALACYCLOVIR HYDROCHLORIDE
     Indication: Infection
     Route: 042
     Dates: start: 20210521, end: 20210523
  9. METRONIDAZOLE [Suspect]
     Active Substance: METRONIDAZOLE
     Indication: Infection
     Dosage: 1500 MG, QD
     Route: 042
     Dates: start: 20210521, end: 20210523
  10. ACYCLOVIR [Suspect]
     Active Substance: ACYCLOVIR
     Indication: Infection
     Dosage: 3300 MG, TID
     Route: 042
     Dates: start: 20210521, end: 20210523
  11. PANTOPRAZOLE [Concomitant]
     Active Substance: PANTOPRAZOLE
     Indication: Product used for unknown indication
  12. ACETAMINOPHEN [Concomitant]
     Active Substance: ACETAMINOPHEN
     Indication: Product used for unknown indication
  13. FERROUS FUMARATE [Concomitant]
     Active Substance: FERROUS FUMARATE
     Indication: Product used for unknown indication
  14. INSULIN NOS [Concomitant]
     Active Substance: INSULIN NOS
     Indication: Product used for unknown indication
  15. LEVOTHYROXINE [Concomitant]
     Active Substance: LEVOTHYROXINE
     Indication: Product used for unknown indication

REACTIONS (1)
  - Epileptic encephalopathy [Recovered/Resolved]

NARRATIVE: CASE EVENT DATE: 20210522
